FAERS Safety Report 7340623-3 (Version None)
Quarter: 2011Q1

REPORT INFORMATION
  Report Type: 
  Country: None (occurrence: None)
  Receive Date: 20110309
  Receipt Date: 20110304
  Transmission Date: 20110831
  Serious: Yes (Hospitalization)
  Sender: FDA-Public Use
  Company Number: DE-ROCHE-642466

PATIENT
  Sex: Female
  Weight: 56 kg

DRUGS (7)
  1. BEVACIZUMAB [Suspect]
     Indication: BREAST CANCER
     Dosage: FREQUENCY: Q21 DOSE: 840MG ROUTE AND FORM AS PER PROTOCOL
     Route: 042
     Dates: start: 20090330
  2. CYCLOPHOSPHAMIDE [Suspect]
     Indication: BREAST CANCER
     Dosage: ROUTE: VIA PORT DOSE: 950 LAST DOSE: 02 JUNE 2009
     Route: 065
     Dates: start: 20090330
  3. BISOPROLOL FUMARATE [Concomitant]
     Dosage: DRUG NAME: BISOPROLOL 2.5- 1 TDD REPORTED AS TWICE
  4. PANTOZOL [Concomitant]
     Dosage: DRUG NAME REPORTED AS PANTOZOL 20-1
  5. NEULASTA [Concomitant]
     Dates: start: 20090624
  6. DOCETAXEL [Suspect]
     Indication: BREAST CANCER
     Dosage: DOSE: 158 MG FREQUENCY: Q21 LAST DOSE: 23 JUNE 2009
     Route: 065
     Dates: start: 20090623
  7. EPIRUBICIN [Suspect]
     Indication: BREAST CANCER
     Dosage: ROUTE: VIA PORT FREQUENCY: Q21 DOSE: 140 LAST DOSE:02 JUNE 2009
     Route: 065
     Dates: start: 20090330

REACTIONS (1)
  - PALMAR-PLANTAR ERYTHRODYSAESTHESIA SYNDROME [None]
